FAERS Safety Report 13494274 (Version 2)
Quarter: 2017Q2

REPORT INFORMATION
  Report Type: Report from Study
  Country: GB (occurrence: GB)
  Receive Date: 20170428
  Receipt Date: 20170619
  Transmission Date: 20170830
  Serious: Yes (Other)
  Sender: FDA-Public Use
  Company Number: PHHY2016GB183122

PATIENT
  Sex: Male
  Weight: 96 kg

DRUGS (2)
  1. SERETIDE [Concomitant]
     Active Substance: FLUTICASONE PROPIONATE\SALMETEROL XINAFOATE
     Indication: PRODUCT USED FOR UNKNOWN INDICATION
     Dosage: 500/50 UNK, BID
     Route: 055
  2. SALBUTAMOL [Suspect]
     Active Substance: ALBUTEROL
     Indication: CHRONIC OBSTRUCTIVE PULMONARY DISEASE
     Dosage: UNK, PRN
     Route: 055

REACTIONS (5)
  - Chronic obstructive pulmonary disease [Unknown]
  - Weight increased [Unknown]
  - Sleep apnoea syndrome [Unknown]
  - Nasal congestion [Unknown]
  - Hypertension [Unknown]
